FAERS Safety Report 23552256 (Version 2)
Quarter: 2024Q2

REPORT INFORMATION
  Report Type: Spontaneous
  Country: US (occurrence: US)
  Receive Date: 20240222
  Receipt Date: 20240602
  Transmission Date: 20240716
  Serious: Yes (Other)
  Sender: FDA-Public Use
  Company Number: US-ALXN-202309USA000028US

PATIENT
  Sex: Male

DRUGS (2)
  1. STRENSIQ [Suspect]
     Active Substance: ASFOTASE ALFA
     Indication: Hypophosphatasia
     Dosage: 80 MILLIGRAM
     Route: 058
     Dates: start: 2016
  2. NAPROXEN [Concomitant]
     Active Substance: NAPROXEN
     Indication: Product used for unknown indication
     Dosage: 220 MILLIGRAM
     Route: 065

REACTIONS (2)
  - Lipodystrophy acquired [Not Recovered/Not Resolved]
  - Skin reaction [Not Recovered/Not Resolved]
